FAERS Safety Report 7712534-2 (Version None)
Quarter: 2011Q3

REPORT INFORMATION
  Report Type: 
  Country: None (occurrence: None)
  Receive Date: 20110823
  Receipt Date: 20110805
  Transmission Date: 20111222
  Serious: Yes (Other)
  Sender: FDA-Public Use
  Company Number: 2011MA011404

PATIENT
  Age: 61 Year
  Sex: Male

DRUGS (4)
  1. PREGABALIN [Suspect]
     Indication: CONVULSION PROPHYLAXIS
  2. FOLIC ACID [Suspect]
     Indication: BLOOD HOMOCYSTEINE INCREASED
  3. PHENYTOIN [Suspect]
     Indication: CONVULSION PROPHYLAXIS
  4. TOPIRAMATE [Suspect]
     Indication: CONVULSION PROPHYLAXIS

REACTIONS (5)
  - RETINAL VEIN OCCLUSION [None]
  - RETINAL HAEMORRHAGE [None]
  - CONVULSION [None]
  - CONDITION AGGRAVATED [None]
  - BLOOD HOMOCYSTEINE INCREASED [None]
